FAERS Safety Report 9337817 (Version 4)
Quarter: 2013Q3

REPORT INFORMATION
  Report Type: Spontaneous
  Country: US (occurrence: US)
  Receive Date: 20130607
  Receipt Date: 20130722
  Transmission Date: 20140515
  Serious: No
  Sender: FDA-Public Use
  Company Number: US-PFIZER INC-2013170480

PATIENT
  Age: 65 Year
  Sex: Female
  Weight: 43.99 kg

DRUGS (2)
  1. PREMARIN [Suspect]
     Indication: VULVOVAGINAL DRYNESS
     Dosage: 1 G, 2X/WEEK
     Route: 067
     Dates: start: 20130412, end: 201305
  2. LEVOTHYROXINE [Concomitant]
     Indication: THYROID DISORDER
     Dosage: 0.05 MG, 1X/DAY

REACTIONS (1)
  - Alopecia [Unknown]
